FAERS Safety Report 11110979 (Version 1)
Quarter: 2015Q2

REPORT INFORMATION
  Report Type: Report from Study
  Country: FR (occurrence: FR)
  Receive Date: 20150513
  Receipt Date: 20150513
  Transmission Date: 20150821
  Serious: Yes (Other)
  Sender: FDA-Public Use
  Company Number: FR-BAYER-2015-184554

PATIENT
  Age: 75 Year
  Sex: Male

DRUGS (2)
  1. BRIVANIB [Suspect]
     Active Substance: BRIVANIB
     Indication: HEPATIC CANCER
  2. SORAFENIB [Suspect]
     Active Substance: SORAFENIB
     Indication: HEPATIC CANCER
     Route: 048

REACTIONS (5)
  - Renal disorder [None]
  - Renal tubular necrosis [None]
  - Proteinuria [None]
  - Haematuria [None]
  - Thrombotic microangiopathy [None]
